FAERS Safety Report 7781978-5 (Version None)
Quarter: 2011Q3

REPORT INFORMATION
  Report Type: 
  Country: None (occurrence: None)
  Receive Date: 20110927
  Receipt Date: 20110921
  Transmission Date: 20111222
  Serious: Yes (Hospitalization, Other)
  Sender: FDA-Public Use
  Company Number: PHHY2011AT10128

PATIENT
  Sex: Male

DRUGS (4)
  1. SANDOSTATIN LAR [Suspect]
     Dosage: 30 MG, QMO
  2. PARKEMED [Concomitant]
     Dosage: UNK UKN, UNK
  3. SANDOSTATIN LAR [Suspect]
     Indication: NEUROENDOCRINE TUMOUR
     Dosage: 30 MG, QMO
     Dates: start: 20100201
  4. DICLOFENAC POTASSIUM [Suspect]
     Dosage: UNK UKN, UNK

REACTIONS (6)
  - BACK PAIN [None]
  - VOMITING [None]
  - TENDERNESS [None]
  - HEADACHE [None]
  - ARTHRALGIA [None]
  - NAUSEA [None]
